FAERS Safety Report 7669231-1 (Version None)
Quarter: 2011Q3

REPORT INFORMATION
  Report Type: 
  Country: None (occurrence: None)
  Receive Date: 20110808
  Receipt Date: 20110729
  Transmission Date: 20111222
  Serious: Yes (Hospitalization)
  Sender: FDA-Public Use
  Company Number: PHHY2011US66309

PATIENT
  Sex: Female
  Weight: 54.5 kg

DRUGS (4)
  1. TOBI [Suspect]
     Indication: PSEUDOMONAS INFECTION
     Dosage: 300 MG, TWICE A DAY VIA NEBULIZER IN A CYCLE OF 28 DAYS ON AND 28 DAYS OFF
     Dates: start: 20110504
  2. PROGAF [Concomitant]
     Dosage: 2 MG, Q12H
     Route: 048
  3. VALAYTE [Concomitant]
     Dosage: 450 MG, QD
     Route: 048
  4. PREDNISONE [Concomitant]
     Dosage: 10 MG, QD
     Route: 048

REACTIONS (4)
  - LUNG INFECTION [None]
  - NEUTROPENIA [None]
  - VIRAL INFECTION [None]
  - DYSPNOEA [None]
